FAERS Safety Report 10905864 (Version 3)
Quarter: 2015Q2

REPORT INFORMATION
  Report Type: Spontaneous
  Country: DE (occurrence: None)
  Receive Date: 20150220
  Receipt Date: 20150507
  Transmission Date: 20150821
  Serious: Yes (Disabling, Other)
  Sender: FDA-Public Use
  Company Number: GAM-040-15-DE

PATIENT
  Age: 47 Year
  Sex: Female

DRUGS (5)
  1. DEXAMETHASON [Concomitant]
     Active Substance: DEXAMETHASONE
  2. PREDNISOLONE. [Concomitant]
     Active Substance: PREDNISOLONE
  3. OCTAGAM IMMUNE GLOBULIN (HUMAN) [Suspect]
     Active Substance: HUMAN IMMUNOGLOBULIN G
     Indication: IMMUNE THROMBOCYTOPENIC PURPURA
     Dosage: 20 G (1X 1/TOTAL)
     Route: 042
     Dates: start: 20140206, end: 20140207
  4. PANTOPRAZOLE [Concomitant]
     Active Substance: PANTOPRAZOLE SODIUM
  5. ELTROMBOPAG [Concomitant]
     Active Substance: ELTROMBOPAG

REACTIONS (2)
  - Suspected transmission of an infectious agent via product [None]
  - Chronic hepatitis B [None]

NARRATIVE: CASE EVENT DATE: 20140811
